FAERS Safety Report 7351194-X (Version None)
Quarter: 2011Q1

REPORT INFORMATION
  Report Type: 
  Country: None (occurrence: None)
  Receive Date: 20110304
  Receipt Date: 20110216
  Transmission Date: 20110831
  Serious: No
  Sender: FDA-Public Use
  Company Number: 201102038

PATIENT
  Age: 5 Year
  Sex: Female
  Weight: 19.0511 kg

DRUGS (2)
  1. ADDERALL XR 10 [Suspect]
     Indication: ATTENTION DEFICIT/HYPERACTIVITY DISORDER
  2. TESTIM [Suspect]
     Indication: BLOOD TESTOSTERONE DECREASED
     Dosage: 1 IN 1 D, TRANSDERMAL
     Route: 062
     Dates: start: 20080101

REACTIONS (4)
  - LIBIDO INCREASED [None]
  - ACCIDENTAL EXPOSURE [None]
  - BLOOD TESTOSTERONE FREE INCREASED [None]
  - PRECOCIOUS PUBERTY [None]
